FAERS Safety Report 23008597 (Version 2)
Quarter: 2023Q4

REPORT INFORMATION
  Report Type: Spontaneous
  Country: US (occurrence: US)
  Receive Date: 20230929
  Receipt Date: 20231110
  Transmission Date: 20240110
  Serious: Yes (Other)
  Sender: FDA-Public Use
  Company Number: US-HIKMA PHARMACEUTICALS USA INC.-US-H14001-23-65502

PATIENT
  Sex: Male

DRUGS (1)
  1. INFUMORPH [Suspect]
     Active Substance: MORPHINE SULFATE
     Indication: Spinal pain
     Dosage: UNKNOWN
     Route: 037
     Dates: start: 20230717

REACTIONS (5)
  - Sensory loss [Recovered/Resolved]
  - Swelling [Recovered/Resolved]
  - Intervertebral disc protrusion [Recovered/Resolved]
  - Underdose [Recovered/Resolved]
  - Unevaluable event [Unknown]
